FAERS Safety Report 23970809 (Version 3)
Quarter: 2024Q4

REPORT INFORMATION
  Report Type: Spontaneous
  Country: JP (occurrence: JP)
  Receive Date: 20240613
  Receipt Date: 20241116
  Transmission Date: 20250114
  Serious: Yes (Other)
  Sender: ALEXION PHARMACEUTICALS
  Company Number: 2024A134415

PATIENT
  Age: 85 Year
  Weight: 53 kg

DRUGS (86)
  1. LOKELMA [Suspect]
     Active Substance: SODIUM ZIRCONIUM CYCLOSILICATE
     Indication: Hyperkalaemia
     Dosage: 5 GRAM, QD
  2. LOKELMA [Suspect]
     Active Substance: SODIUM ZIRCONIUM CYCLOSILICATE
     Dosage: 5 GRAM, QD
  3. LOKELMA [Suspect]
     Active Substance: SODIUM ZIRCONIUM CYCLOSILICATE
     Dosage: 5 GRAM, QD
  4. LOKELMA [Suspect]
     Active Substance: SODIUM ZIRCONIUM CYCLOSILICATE
     Dosage: 5 GRAM, QD
  5. CALCIUM POLYSTYRENE SULFONATE [Suspect]
     Active Substance: CALCIUM POLYSTYRENE SULFONATE
     Indication: Hyperkalaemia
  6. CALCIUM POLYSTYRENE SULFONATE [Suspect]
     Active Substance: CALCIUM POLYSTYRENE SULFONATE
  7. DIART [Concomitant]
     Indication: Cardiac failure
     Dosage: 60 MILLIGRAM, QD
  8. DIART [Concomitant]
     Dosage: 60 MILLIGRAM, QD
  9. DIART [Concomitant]
     Dosage: 60 MILLIGRAM, QD
  10. DIART [Concomitant]
     Dosage: 60 MILLIGRAM, QD
  11. AMLODIPINE BESYLATE [Concomitant]
     Active Substance: AMLODIPINE BESYLATE
     Indication: Hypertension
     Dosage: 5 MILLIGRAM, QD
  12. AMLODIPINE BESYLATE [Concomitant]
     Active Substance: AMLODIPINE BESYLATE
     Dosage: 5 MILLIGRAM, QD
  13. TOPIROXOSTAT [Concomitant]
     Active Substance: TOPIROXOSTAT
     Indication: Hyperuricaemia
     Dosage: 20 MILLIGRAM, QD
  14. TOPIROXOSTAT [Concomitant]
     Active Substance: TOPIROXOSTAT
     Dosage: 20 MILLIGRAM, QD
  15. TOPIROXOSTAT [Concomitant]
     Active Substance: TOPIROXOSTAT
     Dosage: 20 MILLIGRAM, QD
  16. TOPIROXOSTAT [Concomitant]
     Active Substance: TOPIROXOSTAT
     Dosage: 20 MILLIGRAM, QD
  17. TOPIROXOSTAT [Concomitant]
     Active Substance: TOPIROXOSTAT
     Dosage: 40 MILLIGRAM, QD
  18. TOPIROXOSTAT [Concomitant]
     Active Substance: TOPIROXOSTAT
     Dosage: 40 MILLIGRAM, QD
  19. TOPIROXOSTAT [Concomitant]
     Active Substance: TOPIROXOSTAT
     Dosage: 40 MILLIGRAM, QD
  20. TOPIROXOSTAT [Concomitant]
     Active Substance: TOPIROXOSTAT
     Dosage: 40 MILLIGRAM, QD
  21. AMLODIPINE [Concomitant]
     Active Substance: AMLODIPINE BESYLATE
     Indication: Hypertension
     Dosage: 2.5 MILLIGRAM, QD
  22. AMLODIPINE [Concomitant]
     Active Substance: AMLODIPINE BESYLATE
     Dosage: 2.5 MILLIGRAM, QD
  23. AMLODIPINE [Concomitant]
     Active Substance: AMLODIPINE BESYLATE
     Dosage: 2.5 MILLIGRAM, QD
  24. AMLODIPINE [Concomitant]
     Active Substance: AMLODIPINE BESYLATE
     Dosage: 2.5 MILLIGRAM, QD
  25. FUROSEMIDE [Concomitant]
     Active Substance: FUROSEMIDE
     Indication: Hypertension
     Dosage: 20 MILLIGRAM, QD
  26. FUROSEMIDE [Concomitant]
     Active Substance: FUROSEMIDE
     Dosage: 20 MILLIGRAM, QD
  27. FUROSEMIDE [Concomitant]
     Active Substance: FUROSEMIDE
     Dosage: 20 MILLIGRAM, QD
  28. FUROSEMIDE [Concomitant]
     Active Substance: FUROSEMIDE
     Dosage: 20 MILLIGRAM, QD
  29. FUROSEMIDE [Concomitant]
     Active Substance: FUROSEMIDE
     Dosage: 40 MILLIGRAM, QD
  30. FUROSEMIDE [Concomitant]
     Active Substance: FUROSEMIDE
     Dosage: 40 MILLIGRAM, QD
  31. FUROSEMIDE [Concomitant]
     Active Substance: FUROSEMIDE
     Dosage: 40 MILLIGRAM, QD
  32. FUROSEMIDE [Concomitant]
     Active Substance: FUROSEMIDE
     Dosage: 40 MILLIGRAM, QD
  33. BISOPROLOL FUMARATE [Concomitant]
     Active Substance: BISOPROLOL FUMARATE
     Indication: Cardiac failure
     Dosage: 2.5 MILLIGRAM, QD
  34. BISOPROLOL FUMARATE [Concomitant]
     Active Substance: BISOPROLOL FUMARATE
     Dosage: 2.5 MILLIGRAM, QD
  35. BISOPROLOL FUMARATE [Concomitant]
     Active Substance: BISOPROLOL FUMARATE
     Dosage: 2.5 MILLIGRAM, QD
  36. BISOPROLOL FUMARATE [Concomitant]
     Active Substance: BISOPROLOL FUMARATE
     Dosage: 2.5 MILLIGRAM, QD
  37. BUFFERIN [Concomitant]
     Active Substance: ASPIRIN
     Indication: Aortic valve stenosis
     Dosage: 81 MILLIGRAM, QD
  38. BUFFERIN [Concomitant]
     Active Substance: ASPIRIN
     Dosage: 81 MILLIGRAM, QD
  39. BUFFERIN [Concomitant]
     Active Substance: ASPIRIN
     Dosage: 81 MILLIGRAM, QD
  40. BUFFERIN [Concomitant]
     Active Substance: ASPIRIN
     Dosage: 81 MILLIGRAM, QD
  41. LANSOPRAZOLE [Concomitant]
     Active Substance: LANSOPRAZOLE
     Indication: Aortic valve stenosis
     Dosage: 15 MILLIGRAM, QD
  42. LANSOPRAZOLE [Concomitant]
     Active Substance: LANSOPRAZOLE
     Dosage: 15 MILLIGRAM, QD
  43. LANSOPRAZOLE [Concomitant]
     Active Substance: LANSOPRAZOLE
     Dosage: 15 MILLIGRAM, QD
  44. LANSOPRAZOLE [Concomitant]
     Active Substance: LANSOPRAZOLE
     Dosage: 15 MILLIGRAM, QD
  45. ASPIRIN\LANSOPRAZOLE [Concomitant]
     Active Substance: ASPIRIN\LANSOPRAZOLE
     Indication: Aortic valve stenosis
     Dosage: DOSE UNKNOWN
  46. ASPIRIN\LANSOPRAZOLE [Concomitant]
     Active Substance: ASPIRIN\LANSOPRAZOLE
     Dosage: DOSE UNKNOWN
  47. ASPIRIN\LANSOPRAZOLE [Concomitant]
     Active Substance: ASPIRIN\LANSOPRAZOLE
     Dosage: DOSE UNKNOWN
  48. ASPIRIN\LANSOPRAZOLE [Concomitant]
     Active Substance: ASPIRIN\LANSOPRAZOLE
     Dosage: DOSE UNKNOWN
  49. DARBEPOETIN ALFA [Concomitant]
     Active Substance: DARBEPOETIN ALFA
     Indication: Nephrogenic anaemia
     Dosage: 60 MILLIGRAM, QD
  50. DARBEPOETIN ALFA [Concomitant]
     Active Substance: DARBEPOETIN ALFA
     Dosage: 60 MILLIGRAM, QD
  51. ELOBIXIBAT [Concomitant]
     Active Substance: ELOBIXIBAT
     Indication: Constipation
     Dosage: 10 MILLIGRAM, QD
  52. ELOBIXIBAT [Concomitant]
     Active Substance: ELOBIXIBAT
     Dosage: 10 MILLIGRAM, QD
  53. ELOBIXIBAT [Concomitant]
     Active Substance: ELOBIXIBAT
     Dosage: 10 MILLIGRAM, QD
  54. ELOBIXIBAT [Concomitant]
     Active Substance: ELOBIXIBAT
     Dosage: 10 MILLIGRAM, QD
  55. ELOBIXIBAT [Concomitant]
     Active Substance: ELOBIXIBAT
     Dosage: 5 MILLIGRAM, QD
  56. ELOBIXIBAT [Concomitant]
     Active Substance: ELOBIXIBAT
     Dosage: 5 MILLIGRAM, QD
  57. ELOBIXIBAT [Concomitant]
     Active Substance: ELOBIXIBAT
     Dosage: 5 MILLIGRAM, QD
  58. ELOBIXIBAT [Concomitant]
     Active Substance: ELOBIXIBAT
     Dosage: 5 MILLIGRAM, QD
  59. ELOBIXIBAT [Concomitant]
     Active Substance: ELOBIXIBAT
     Dosage: 10 MILLIGRAM, QD
  60. ELOBIXIBAT [Concomitant]
     Active Substance: ELOBIXIBAT
     Dosage: 10 MILLIGRAM, QD
  61. ELOBIXIBAT [Concomitant]
     Active Substance: ELOBIXIBAT
     Dosage: 10 MILLIGRAM, QD
  62. ELOBIXIBAT [Concomitant]
     Active Substance: ELOBIXIBAT
     Dosage: 10 MILLIGRAM, QD
  63. ELOBIXIBAT [Concomitant]
     Active Substance: ELOBIXIBAT
  64. ELOBIXIBAT [Concomitant]
     Active Substance: ELOBIXIBAT
  65. ELOBIXIBAT [Concomitant]
     Active Substance: ELOBIXIBAT
  66. ELOBIXIBAT [Concomitant]
     Active Substance: ELOBIXIBAT
  67. ELOBIXIBAT [Concomitant]
     Active Substance: ELOBIXIBAT
  68. ELOBIXIBAT [Concomitant]
     Active Substance: ELOBIXIBAT
  69. ELOBIXIBAT [Concomitant]
     Active Substance: ELOBIXIBAT
  70. ELOBIXIBAT [Concomitant]
     Active Substance: ELOBIXIBAT
  71. AMLODIPINE [Concomitant]
     Active Substance: AMLODIPINE BESYLATE
     Indication: Hypertension
     Dosage: 5 MILLIGRAM
  72. AMLODIPINE [Concomitant]
     Active Substance: AMLODIPINE BESYLATE
     Dosage: 5 MILLIGRAM
  73. AMLODIPINE [Concomitant]
     Active Substance: AMLODIPINE BESYLATE
     Dosage: 5 MILLIGRAM
  74. AMLODIPINE [Concomitant]
     Active Substance: AMLODIPINE BESYLATE
     Dosage: 5 MILLIGRAM
  75. BUFFERIN [Concomitant]
     Active Substance: ASPIRIN
     Indication: Aortic valve stenosis
     Dosage: 81 MILLIGRAM
  76. BUFFERIN [Concomitant]
     Active Substance: ASPIRIN
     Dosage: 81 MILLIGRAM
  77. BUFFERIN [Concomitant]
     Active Substance: ASPIRIN
     Dosage: 81 MILLIGRAM
  78. BUFFERIN [Concomitant]
     Active Substance: ASPIRIN
     Dosage: 81 MILLIGRAM
  79. LANSOPRAZOLE [Concomitant]
     Active Substance: LANSOPRAZOLE
     Indication: Aortic valve stenosis
     Dosage: 15 MILLIGRAM
  80. LANSOPRAZOLE [Concomitant]
     Active Substance: LANSOPRAZOLE
     Dosage: 15 MILLIGRAM
  81. LANSOPRAZOLE [Concomitant]
     Active Substance: LANSOPRAZOLE
     Dosage: 15 MILLIGRAM
  82. LANSOPRAZOLE [Concomitant]
     Active Substance: LANSOPRAZOLE
     Dosage: 15 MILLIGRAM
  83. DARBEPOETIN ALFA(GENETICAL RECOMBINATION) [Concomitant]
     Indication: Nephrogenic anaemia
     Dosage: 60 MICROGRAM
  84. DARBEPOETIN ALFA(GENETICAL RECOMBINATION) [Concomitant]
     Dosage: 60 MICROGRAM
  85. DARBEPOETIN ALFA(GENETICAL RECOMBINATION) [Concomitant]
     Dosage: 60 MICROGRAM
  86. DARBEPOETIN ALFA(GENETICAL RECOMBINATION) [Concomitant]
     Dosage: 60 MICROGRAM

REACTIONS (2)
  - Cardiac failure congestive [Recovering/Resolving]
  - Constipation [Unknown]
